FAERS Safety Report 10755814 (Version 1)
Quarter: 2015Q1

REPORT INFORMATION
  Report Type: Spontaneous
  Country: US (occurrence: None)
  Receive Date: 20150123
  Receipt Date: 20150123
  Transmission Date: 20150721
  Serious: No
  Sender: FDA-Public Use
  Company Number: 2014TUS009890

PATIENT
  Sex: Male

DRUGS (1)
  1. ENTYVIO [Suspect]
     Active Substance: VEDOLIZUMAB
     Indication: CROHN^S DISEASE
     Dosage: 300 MG, FIRST DOSE, 4.8 ML STERILE H2O IN 250 ML
     Route: 042
     Dates: start: 20141006

REACTIONS (1)
  - Vessel puncture site erythema [None]

NARRATIVE: CASE EVENT DATE: 20141006
